FAERS Safety Report 9695919 (Version 4)
Quarter: 2014Q1

REPORT INFORMATION
  Report Type: Spontaneous
  Country: US (occurrence: US)
  Receive Date: 20131119
  Receipt Date: 20140127
  Transmission Date: 20141002
  Serious: Yes (Other)
  Sender: FDA-Public Use
  Company Number: US-BAYER-2013-127700

PATIENT
  Age: 30 Year
  Sex: Female

DRUGS (2)
  1. ESSURE [Suspect]
     Dosage: UNK
     Dates: start: 20110601, end: 20131029
  2. MIRENA [Suspect]
     Indication: CONTRACEPTION
     Dosage: 20 MCG/24HR, CONT
     Route: 015
     Dates: start: 201106

REACTIONS (29)
  - Pelvic pain [Recovering/Resolving]
  - Allergy to metals [Recovering/Resolving]
  - Urinary tract infection [Unknown]
  - Back pain [Unknown]
  - Micturition urgency [Unknown]
  - Urine odour abnormal [Unknown]
  - Arthralgia [Recovering/Resolving]
  - Anxiety [Unknown]
  - Ovarian cyst [Unknown]
  - Urine odour abnormal [Unknown]
  - Arthralgia [Recovering/Resolving]
  - Pain [Recovering/Resolving]
  - Breast pain [Unknown]
  - Oligomenorrhoea [Unknown]
  - Genital haemorrhage [Unknown]
  - Fatigue [Recovering/Resolving]
  - Migraine [Recovering/Resolving]
  - Headache [Recovering/Resolving]
  - Dermatitis contact [Recovering/Resolving]
  - Food allergy [Recovering/Resolving]
  - Oral pruritus [Recovering/Resolving]
  - Dysgeusia [Unknown]
  - Night sweats [Unknown]
  - Pruritus [Recovering/Resolving]
  - Immune system disorder [Recovering/Resolving]
  - Impaired healing [Recovering/Resolving]
  - Arthritis [Recovering/Resolving]
  - Fear of disease [Unknown]
  - Off label use [Unknown]
